FAERS Safety Report 19862387 (Version 1)
Quarter: 2021Q3

REPORT INFORMATION
  Report Type: Spontaneous
  Country: CA (occurrence: CA)
  Receive Date: 20210921
  Receipt Date: 20210921
  Transmission Date: 20211014
  Serious: Yes (Hospitalization)
  Sender: FDA-Public Use
  Company Number: CA-TEVA-2021-CA-1954891

PATIENT
  Age: 65 Year
  Sex: Female
  Weight: 42 kg

DRUGS (10)
  1. DOXORUBICIN HYDROCHLORIDE. [Suspect]
     Active Substance: DOXORUBICIN HYDROCHLORIDE
     Route: 065
  2. VINCRISTINE SULFATE. [Suspect]
     Active Substance: VINCRISTINE SULFATE
     Route: 065
  3. ACETAMINOPHEN. [Concomitant]
     Active Substance: ACETAMINOPHEN
  4. DIPHENHYDRAMINE. [Concomitant]
     Active Substance: DIPHENHYDRAMINE
  5. FILGRASTIM [Concomitant]
     Active Substance: FILGRASTIM
  6. PREDNISONE. [Suspect]
     Active Substance: PREDNISONE
     Route: 065
  7. LORAZEPAM. [Concomitant]
     Active Substance: LORAZEPAM
  8. ONDANSETRON [Concomitant]
     Active Substance: ONDANSETRON
  9. RITUXAN [Suspect]
     Active Substance: RITUXIMAB
     Indication: CHRONIC LYMPHOCYTIC LEUKAEMIA
     Route: 065
  10. CYCLOPHOSPHAMIDE. [Suspect]
     Active Substance: CYCLOPHOSPHAMIDE
     Route: 065

REACTIONS (1)
  - Febrile neutropenia [Recovered/Resolved]
